FAERS Safety Report 6243602-2 (Version None)
Quarter: 2009Q2

REPORT INFORMATION
  Report Type: 
  Country: None (occurrence: None)
  Receive Date: 20090624
  Receipt Date: 20090612
  Transmission Date: 20091009
  Serious: Yes (Death, Other)
  Sender: FDA-Public Use
  Company Number: JP-PFIZER INC-2009205738

PATIENT
  Age: 72 Year

DRUGS (2)
  1. VFEND [Suspect]
     Indication: ASPERGILLOSIS
     Dosage: 200 MG, 2X/DAY
     Route: 048
     Dates: start: 20090416, end: 20090512
  2. FINIBAX [Concomitant]
     Route: 042
     Dates: end: 20090420

REACTIONS (3)
  - DEATH [None]
  - HALLUCINATION [None]
  - HYPONATRAEMIA [None]
